FAERS Safety Report 5407347-0 (Version None)
Quarter: 2007Q3

REPORT INFORMATION
  Report Type: 
  Country: None (occurrence: None)
  Receive Date: 20070807
  Receipt Date: 20070726
  Transmission Date: 20080115
  Serious: Yes (Life-Threatening)
  Sender: FDA-Public Use
  Company Number: DEWYE084704OCT04

PATIENT
  Sex: Female
  Weight: 70 kg

DRUGS (4)
  1. VENLAFAXINE HCL [Suspect]
     Indication: DEPRESSION
     Dosage: 75 - 150 MG DAILY
     Route: 048
     Dates: start: 20020906, end: 20070402
  2. VENLAFAXINE HCL [Suspect]
     Indication: ANXIETY
  3. ORFIRIL - SLOW RELEASE [Suspect]
     Dosage: 300 MG DAILY
     Route: 048
     Dates: end: 20040830
  4. LAMOTRIGINE [Suspect]
     Route: 048
     Dates: start: 20040122

REACTIONS (4)
  - ABORTION SPONTANEOUS [None]
  - DRUG EXPOSURE DURING PREGNANCY [None]
  - ECTOPIC PREGNANCY [None]
  - METRORRHAGIA [None]
